FAERS Safety Report 6711320-X (Version None)
Quarter: 2010Q2

REPORT INFORMATION
  Report Type: 
  Country: None (occurrence: None)
  Receive Date: 20100505
  Receipt Date: 20100426
  Transmission Date: 20101027
  Serious: Yes (Hospitalization, Other)
  Sender: FDA-Public Use
  Company Number: EG-BAYER-201023535GPV

PATIENT
  Age: 46 Year
  Sex: Female

DRUGS (5)
  1. NEXAVAR [Suspect]
     Indication: METASTATIC RENAL CELL CARCINOMA
     Dosage: TOTAL DAILY DOSE: 800 MG
     Route: 048
     Dates: start: 20081103, end: 20100426
  2. RANITIDINE [Concomitant]
     Indication: PROPHYLAXIS
     Dosage: TOTAL DAILY DOSE: 300 MG
     Route: 048
  3. MOTILIUM [Concomitant]
     Indication: GASTROINTESTINAL DISORDER
     Dosage: TOTAL DAILY DOSE: 30 MG
     Route: 048
  4. ALLOPURINOL [Concomitant]
     Indication: PROPHYLAXIS
     Route: 048
  5. MULTI-VITAMINS [Concomitant]
     Indication: SUPPORTIVE CARE
     Route: 048

REACTIONS (2)
  - DEPRESSION [None]
  - SUICIDE ATTEMPT [None]
